FAERS Safety Report 8045146-4 (Version None)
Quarter: 2012Q1

REPORT INFORMATION
  Report Type: 
  Country: None (occurrence: None)
  Receive Date: 20120113
  Receipt Date: 20111205
  Transmission Date: 20120608
  Serious: Yes (Hospitalization, Other)
  Sender: FDA-Public Use
  Company Number: US-ASTRAZENECA-2011SE73941

PATIENT
  Age: 31 Year
  Sex: Female
  Weight: 68 kg

DRUGS (11)
  1. SEROQUEL [Suspect]
     Indication: BIPOLAR DISORDER
     Route: 048
  2. SEROQUEL [Suspect]
     Indication: CYCLIC VOMITING SYNDROME
     Route: 048
  3. SEROQUEL [Suspect]
     Route: 048
     Dates: start: 20111101
  4. SEROQUEL [Suspect]
     Route: 048
     Dates: start: 20111101
  5. SEROQUEL [Suspect]
     Route: 048
     Dates: start: 20111101
  6. LISINOPRIL [Suspect]
     Route: 048
  7. REMERON [Concomitant]
     Indication: INSOMNIA
  8. REMERON [Concomitant]
     Indication: ANTIDEPRESSANT THERAPY
  9. SPIRONOLACTONE [Concomitant]
  10. SEROQUEL [Suspect]
     Route: 048
     Dates: start: 20111101
  11. LOPRESSOR [Concomitant]
     Indication: BLOOD PRESSURE

REACTIONS (9)
  - HAEMATEMESIS [None]
  - EATING DISORDER [None]
  - HEADACHE [None]
  - VOMITING [None]
  - SOMNOLENCE [None]
  - ACTIVITIES OF DAILY LIVING IMPAIRED [None]
  - ANGIOEDEMA [None]
  - DEPRESSED LEVEL OF CONSCIOUSNESS [None]
  - MALAISE [None]
